FAERS Safety Report 23174973 (Version 5)
Quarter: 2024Q2

REPORT INFORMATION
  Report Type: Spontaneous
  Country: TW (occurrence: TW)
  Receive Date: 20231112
  Receipt Date: 20240607
  Transmission Date: 20240715
  Serious: Yes (Other)
  Sender: FDA-Public Use
  Company Number: TW-002147023-NVSC2023TW129149

PATIENT
  Age: 41 Year
  Sex: Female

DRUGS (4)
  1. MYCOPHENOLATE SODIUM [Suspect]
     Active Substance: MYCOPHENOLATE SODIUM
     Dosage: 720 MG, BID
     Route: 048
     Dates: start: 20221121
  2. MYCOPHENOLATE SODIUM [Suspect]
     Active Substance: MYCOPHENOLATE SODIUM
     Indication: Lupus nephritis
     Dosage: 540 MG
     Route: 048
     Dates: start: 20221003, end: 20221120
  3. MYCOPHENOLATE SODIUM [Suspect]
     Active Substance: MYCOPHENOLATE SODIUM
     Dosage: UNK
     Route: 048
     Dates: start: 20230930, end: 20231010
  4. FOLIC ACID [Concomitant]
     Active Substance: FOLIC ACID
     Indication: Iron deficiency anaemia
     Dosage: 5 MG, QD
     Route: 048
     Dates: start: 20230714

REACTIONS (8)
  - Influenza [Recovered/Resolved]
  - Nasal congestion [Recovered/Resolved]
  - Non-cardiac chest pain [Recovering/Resolving]
  - Productive cough [Recovered/Resolved]
  - Pneumonia [Recovering/Resolving]
  - Cough [Recovered/Resolved]
  - Cough [Recovered/Resolved]
  - Productive cough [Recovered/Resolved]

NARRATIVE: CASE EVENT DATE: 20221017
